FAERS Safety Report 18057945 (Version 1)
Quarter: 2020Q3

REPORT INFORMATION
  Report Type: Spontaneous
  Country: US (occurrence: US)
  Receive Date: 20200723
  Receipt Date: 20200723
  Transmission Date: 20201103
  Serious: Yes (Hospitalization, Other)
  Sender: FDA-Public Use
  Company Number: US-ASTELLAS-2020US024572

PATIENT
  Age: 56 Year
  Sex: Male

DRUGS (8)
  1. MMF [Suspect]
     Active Substance: MYCOPHENOLATE MOFETIL
     Indication: HEART TRANSPLANT
     Route: 065
     Dates: start: 2020, end: 2020
  2. PREDNISONE. [Suspect]
     Active Substance: PREDNISONE
     Route: 065
     Dates: start: 2020
  3. TACROLIMUS. [Suspect]
     Active Substance: TACROLIMUS
     Indication: HEART TRANSPLANT
     Dosage: UNK, UNKNOWN FREQ.
     Route: 065
     Dates: start: 2020, end: 2020
  4. TACROLIMUS. [Suspect]
     Active Substance: TACROLIMUS
     Indication: RENAL TRANSPLANT
     Dosage: UNK, UNKNOWN FREQ. (GOAL 5?8 ?G/L)
     Route: 065
     Dates: start: 2020
  5. MMF [Suspect]
     Active Substance: MYCOPHENOLATE MOFETIL
     Route: 065
     Dates: start: 2020
  6. PREDNISONE. [Suspect]
     Active Substance: PREDNISONE
     Indication: HEART TRANSPLANT
     Route: 065
     Dates: start: 2020, end: 2020
  7. PREDNISONE. [Suspect]
     Active Substance: PREDNISONE
     Indication: RENAL TRANSPLANT
     Route: 065
     Dates: start: 2020, end: 2020
  8. MMF [Suspect]
     Active Substance: MYCOPHENOLATE MOFETIL
     Indication: RENAL TRANSPLANT
     Route: 065
     Dates: start: 2020, end: 2020

REACTIONS (16)
  - Respiratory tract infection bacterial [Unknown]
  - Pneumonia klebsiella [Unknown]
  - Enterococcal infection [Unknown]
  - Postoperative wound infection [Unknown]
  - Renal tubular necrosis [Unknown]
  - Perinephric collection [Unknown]
  - Stenotrophomonas infection [Unknown]
  - Wound infection staphylococcal [Unknown]
  - Immunosuppressant drug level increased [Unknown]
  - Pleural effusion [Unknown]
  - Morganella infection [Unknown]
  - Corynebacterium infection [Unknown]
  - Staphylococcal infection [Unknown]
  - Staphylococcal bacteraemia [Unknown]
  - Polyomavirus viraemia [Unknown]
  - Pneumonia [Unknown]

NARRATIVE: CASE EVENT DATE: 2020
